FAERS Safety Report 4354211-4 (Version None)
Quarter: 2004Q2

REPORT INFORMATION
  Report Type: 
  Country: None (occurrence: None)
  Receive Date: 20040506
  Receipt Date: 20040301
  Transmission Date: 20050107
  Serious: Yes (Hospitalization)
  Sender: FDA-Public Use
  Company Number: US-BRISTOL-MYERS SQUIBB COMPANY-12521332

PATIENT
  Age: 40 Year
  Sex: Female

DRUGS (5)
  1. BLINDED: MURAGLITAZAR [Suspect]
     Indication: DIABETES MELLITUS NON-INSULIN-DEPENDENT
     Route: 048
     Dates: start: 20031009, end: 20040228
  2. METFORMIN HCL [Suspect]
     Route: 048
     Dates: start: 20030728
  3. XANAX [Concomitant]
     Dates: start: 20030902, end: 20031229
  4. PROZAC [Concomitant]
     Dates: start: 20031230
  5. FLUOXETINE [Concomitant]
     Dates: start: 20030825, end: 20031229

REACTIONS (2)
  - INTERSTITIAL LUNG DISEASE [None]
  - PULMONARY EMBOLISM [None]
